FAERS Safety Report 22131301 (Version 6)
Quarter: 2023Q4

REPORT INFORMATION
  Report Type: Report from Study
  Country: US (occurrence: US)
  Receive Date: 20230323
  Receipt Date: 20231121
  Transmission Date: 20240110
  Serious: No
  Sender: FDA-Public Use
  Company Number: US-XERIS PHARMACEUTICALS-2022XER00409

PATIENT
  Age: 46 Year
  Sex: Female

DRUGS (28)
  1. RECORLEV [Suspect]
     Active Substance: LEVOKETOCONAZOLE
     Indication: Ectopic ACTH syndrome
     Dosage: 1 TABLET (150 MG), 1X/DAY IN THE MORNING
     Route: 048
     Dates: start: 2022, end: 20221108
  2. RECORLEV [Suspect]
     Active Substance: LEVOKETOCONAZOLE
     Indication: Pituitary tumour benign
     Dosage: 2 TABLETS (300 MG), 1X/DAY IN THE EVENING
     Route: 048
     Dates: start: 20221108
  3. RECORLEV [Suspect]
     Active Substance: LEVOKETOCONAZOLE
     Dosage: DOSE DECREASED
     Route: 048
     Dates: start: 20230228
  4. RECORLEV [Suspect]
     Active Substance: LEVOKETOCONAZOLE
     Dosage: 2 TABLETS (300 MG), 2X/DAY (AM AND PM)
     Route: 048
  5. RECORLEV [Suspect]
     Active Substance: LEVOKETOCONAZOLE
     Dosage: 2 TABLETS (300 MG), 2X/DAY (AM AND PM)
     Route: 048
  6. RECORLEV [Suspect]
     Active Substance: LEVOKETOCONAZOLE
     Dosage: 2 TABLETS (300 MG), 2X/DAY (AM AND PM)
     Route: 048
  7. AMITRIPTYLINE [Concomitant]
     Active Substance: AMITRIPTYLINE
     Dosage: 25 MG, 2X/DAY
  8. AMLODIPINE [Concomitant]
     Active Substance: AMLODIPINE BESYLATE
     Dosage: 5 MG, 1X/DAY
     Route: 048
  9. ATORVASTATIN [Concomitant]
     Active Substance: ATORVASTATIN
     Dosage: 20 MG, 1X/DAY
     Route: 048
  10. BUPRENORPHINE\NALOXONE [Concomitant]
     Active Substance: BUPRENORPHINE\NALOXONE
     Dosage: 1 FILM, 2X/DAY
     Route: 002
  11. CONSTULOSE [Concomitant]
     Active Substance: LACTULOSE
     Dosage: 15 ML, 2X/DAY AS NEEDED
     Route: 048
  12. CYANOCOBALAMIN [Concomitant]
     Active Substance: CYANOCOBALAMIN
     Dosage: 1 ML, 1X/WEEK FOR 4 WEEKS
     Route: 058
  13. CYANOCOBALAMIN [Concomitant]
     Active Substance: CYANOCOBALAMIN
     Dosage: 1 ML, 1X/MONTH
     Route: 058
  14. ERGOCALCIFEROL [Concomitant]
     Active Substance: ERGOCALCIFEROL
     Dosage: 1 CAPSULE, 1X/WEEK
     Route: 048
  15. GLIMEPIRIDE [Concomitant]
     Active Substance: GLIMEPIRIDE
     Dosage: 4 MG, 2X/DAY
     Route: 048
  16. ACETAMINOPHEN\HYDROCODONE [Concomitant]
     Active Substance: ACETAMINOPHEN\HYDROCODONE
     Indication: Pain
     Dosage: 1 TABLET, 3X/DAY
  17. INDAPAMIDE [Concomitant]
     Active Substance: INDAPAMIDE
     Dosage: 2.5 MG, 1X/DAY
     Route: 048
  18. LEVOTHYROXINE [Concomitant]
     Active Substance: LEVOTHYROXINE
     Dosage: 100 ?G, 1X/DAY
     Route: 048
  19. LIDOCAINE [Concomitant]
     Active Substance: LIDOCAINE
     Dosage: 1-4 TIMES DAILY AS NEEDED
     Route: 061
  20. LISINOPRIL [Concomitant]
     Active Substance: LISINOPRIL
     Dosage: 10 MG, 1X/DAY
     Route: 048
  21. METHOCARBAMOL [Concomitant]
     Active Substance: METHOCARBAMOL
     Dosage: 750 MG, 3X/DAY
     Route: 048
  22. NARCAN [Concomitant]
     Active Substance: NALOXONE HYDROCHLORIDE
     Dosage: 1 SPRAY INTO NOSTRIL, ONCE
  23. NYSTATIN [Concomitant]
     Active Substance: NYSTATIN
     Dosage: UNK, 2X/DAY
     Route: 061
  24. ONDANSETRON HYDROCHLORIDE [Concomitant]
     Active Substance: ONDANSETRON HYDROCHLORIDE
     Dosage: 8 MG, EVERY 12-24 HOURS AS NEEDED
     Route: 048
  25. PROMETHAZINE [Concomitant]
     Active Substance: PROMETHAZINE HYDROCHLORIDE
     Dosage: 25 MG, 3X/DAY
     Route: 048
  26. SUBOXONE [Concomitant]
     Active Substance: BUPRENORPHINE HYDROCHLORIDE\NALOXONE HYDROCHLORIDE
  27. VICTOZA [Concomitant]
     Active Substance: LIRAGLUTIDE
     Dosage: 0.6 MG, 1X/DAY, TITRATE AS DIRECTED UP TO 1.8 MG 1X/DAY
     Route: 058
  28. VITAMIN D3 [Concomitant]
     Active Substance: CHOLECALCIFEROL

REACTIONS (11)
  - Blood chloride decreased [Unknown]
  - Blood glucose increased [Unknown]
  - Blood sodium decreased [Unknown]
  - White blood cell count increased [Unknown]
  - Glycosylated haemoglobin increased [Unknown]
  - Hyperhidrosis [Not Recovered/Not Resolved]
  - Gastrointestinal inflammation [Not Recovered/Not Resolved]
  - Pyrexia [Not Recovered/Not Resolved]
  - Malaise [Not Recovered/Not Resolved]
  - Infection [Not Recovered/Not Resolved]
  - Nausea [Not Recovered/Not Resolved]

NARRATIVE: CASE EVENT DATE: 20230310
